FAERS Safety Report 9167617 (Version 3)
Quarter: 2013Q3

REPORT INFORMATION
  Report Type: Spontaneous
  Country: US (occurrence: None)
  Receive Date: 20130304
  Receipt Date: 20130815
  Transmission Date: 20140515
  Serious: Yes (Other)
  Sender: FDA-Public Use
  Company Number: ADR-2012-00751

PATIENT
  Sex: Female

DRUGS (4)
  1. BACLOFEN [Suspect]
     Indication: POST LAMINECTOMY SYNDROME
  2. CLONIDINE [Concomitant]
  3. BUPIVACAINE [Concomitant]
  4. MORPHINE [Concomitant]

REACTIONS (23)
  - Drug withdrawal syndrome [None]
  - Nausea [None]
  - Vomiting [None]
  - Retching [None]
  - Hypophagia [None]
  - Tachycardia [None]
  - Dehydration [None]
  - Petit mal epilepsy [None]
  - Suicidal ideation [None]
  - Unresponsive to stimuli [None]
  - Neck mass [None]
  - Meningitis [None]
  - Decreased appetite [None]
  - Retching [None]
  - Convulsion [None]
  - Pain [None]
  - Asthenia [None]
  - Photopsia [None]
  - Malaise [None]
  - Muscle spasms [None]
  - Neoplasm skin [None]
  - Malignant neoplasm of spinal cord [None]
  - Aphagia [None]
